FAERS Safety Report 25236618 (Version 1)
Quarter: 2025Q2

REPORT INFORMATION
  Report Type: Spontaneous
  Country: US (occurrence: US)
  Receive Date: 20250424
  Receipt Date: 20250424
  Transmission Date: 20250717
  Serious: No
  Sender: CALLIDITAS THERAPEUTICS AB
  Company Number: US-Calliditas-2025CAL01061

PATIENT
  Age: 48 Year
  Sex: Male

DRUGS (12)
  1. TARPEYO [Suspect]
     Active Substance: BUDESONIDE
     Indication: IgA nephropathy
     Route: 048
     Dates: start: 20250131
  2. AMLODIPINE [Concomitant]
     Active Substance: AMLODIPINE BESYLATE
  3. ASPIRIN [Concomitant]
     Active Substance: ASPIRIN
  4. ATORVASTATIN [Concomitant]
     Active Substance: ATORVASTATIN
  5. ADVAIR HFA [Concomitant]
     Active Substance: FLUTICASONE PROPIONATE\SALMETEROL XINAFOATE
  6. LISINOPRIL [Concomitant]
     Active Substance: LISINOPRIL
  7. METFORMIN HYDROCHLORIDE [Concomitant]
     Active Substance: METFORMIN HYDROCHLORIDE
  8. LORATADINE [Concomitant]
     Active Substance: LORATADINE
  9. OZEMPIC [Concomitant]
     Active Substance: SEMAGLUTIDE
  10. BUDESONIDE [Concomitant]
     Active Substance: BUDESONIDE
  11. CARVEDILOL [Concomitant]
     Active Substance: CARVEDILOL
  12. JARDIANCE [Concomitant]
     Active Substance: EMPAGLIFLOZIN

REACTIONS (4)
  - Muscle spasms [Not Recovered/Not Resolved]
  - Peripheral swelling [Not Recovered/Not Resolved]
  - Oral hyperaesthesia [Not Recovered/Not Resolved]
  - Fluid retention [Not Recovered/Not Resolved]
